FAERS Safety Report 20076342 (Version 1)
Quarter: 2021Q4

REPORT INFORMATION
  Report Type: Spontaneous
  Country: DE (occurrence: DE)
  Receive Date: 20211116
  Receipt Date: 20211116
  Transmission Date: 20220304
  Serious: Yes (Hospitalization)
  Sender: FDA-Public Use
  Company Number: DE-ADRED-07203-01

PATIENT
  Age: 75 Year
  Sex: Female
  Weight: 79 kg

DRUGS (5)
  1. LEVETIRACETAM [Suspect]
     Active Substance: LEVETIRACETAM
     Indication: Product used for unknown indication
     Dosage: UNK (1-0-0-0)
  2. VALSARTAN [Concomitant]
     Active Substance: VALSARTAN
     Dosage: 160 MILLIGRAM (160 MG, 0-0-1-0)
  3. BISOPROLOL [Concomitant]
     Active Substance: BISOPROLOL
     Dosage: 5 MILLIGRAM (5 MG, 1-0-0-0)
  4. LEVOTHYROXINE SODIUM [Concomitant]
     Active Substance: LEVOTHYROXINE SODIUM
     Dosage: 100 MILLIGRAM (100 MG, 0-0-1-0)
  5. TORSEMIDE [Concomitant]
     Active Substance: TORSEMIDE
     Dosage: 2.5 MILLIGRAM (2.5 MG, 1-0-0-0)

REACTIONS (4)
  - Retrograde amnesia [Unknown]
  - Fall [Unknown]
  - Haematoma [Unknown]
  - Product administration error [Unknown]
